FAERS Safety Report 16001481 (Version 3)
Quarter: 2019Q1

REPORT INFORMATION
  Report Type: Spontaneous
  Country: US (occurrence: US)
  Receive Date: 20190225
  Receipt Date: 20190311
  Transmission Date: 20190418
  Serious: Yes (Hospitalization, Other)
  Sender: FDA-Public Use
  Company Number: US-SUNOVION-2019SUN000728

PATIENT
  Age: 17 Year
  Sex: Female
  Weight: 74.2 kg

DRUGS (1)
  1. APTIOM [Suspect]
     Active Substance: ESLICARBAZEPINE ACETATE
     Indication: SEIZURE
     Dosage: 1000 MG, QHS
     Route: 048
     Dates: start: 20190129, end: 20190219

REACTIONS (3)
  - Generalised erythema [Recovering/Resolving]
  - Angioedema [Recovering/Resolving]
  - Rash [Not Recovered/Not Resolved]

NARRATIVE: CASE EVENT DATE: 20190215
